FAERS Safety Report 7274087-5 (Version None)
Quarter: 2011Q1

REPORT INFORMATION
  Report Type: 
  Country: None (occurrence: None)
  Receive Date: 20110204
  Receipt Date: 20110125
  Transmission Date: 20110831
  Serious: Yes (Hospitalization)
  Sender: FDA-Public Use
  Company Number: US-BIOGENIDEC-2010BI039486

PATIENT
  Age: 38 Year
  Sex: Female
  Weight: 107 kg

DRUGS (2)
  1. TYSABRI [Suspect]
     Indication: MULTIPLE SCLEROSIS
     Route: 042
     Dates: start: 20080131, end: 20100202
  2. TYSABRI [Suspect]
     Route: 042
     Dates: start: 20101012, end: 20101101

REACTIONS (1)
  - DECUBITUS ULCER [None]
